FAERS Safety Report 6897455-X (Version None)
Quarter: 2010Q3

REPORT INFORMATION
  Report Type: 
  Country: None (occurrence: None)
  Receive Date: 20100802
  Receipt Date: 20100727
  Transmission Date: 20110219
  Serious: Yes (Congenital Anomaly)
  Sender: FDA-Public Use
  Company Number: AR-B.I. PHARMACEUTICALS,INC./RIDGEFIELD-2010-BP-08477BP

PATIENT
  Sex: Male

DRUGS (11)
  1. VIRAMUNE [Suspect]
     Indication: DRUG EXPOSURE DURING PREGNANCY
     Route: 064
     Dates: start: 20050415, end: 20050429
  2. SUSTIVA [Concomitant]
     Indication: DRUG EXPOSURE DURING PREGNANCY
     Route: 064
     Dates: start: 20021205, end: 20050111
  3. VIRACEPT [Concomitant]
     Indication: DRUG EXPOSURE DURING PREGNANCY
     Route: 064
     Dates: start: 20050516, end: 20051028
  4. COMBIVIR [Concomitant]
     Indication: DRUG EXPOSURE DURING PREGNANCY
     Route: 064
     Dates: start: 20021205, end: 20050111
  5. COMBIVIR [Concomitant]
     Route: 064
     Dates: start: 20050415, end: 20050429
  6. COMBIVIR [Concomitant]
     Route: 064
     Dates: start: 20050516, end: 20051028
  7. DIPHENHYDRAMINE [Concomitant]
     Indication: DRUG EXPOSURE DURING PREGNANCY
     Route: 064
  8. ESTRADIOL [Concomitant]
     Indication: DRUG EXPOSURE DURING PREGNANCY
     Route: 064
  9. FERROUS SULFATE [Concomitant]
     Indication: DRUG EXPOSURE DURING PREGNANCY
     Route: 064
  10. FOLIC ACID [Concomitant]
     Indication: DRUG EXPOSURE DURING PREGNANCY
     Route: 064
  11. PARACETAMOL [Concomitant]
     Indication: DRUG EXPOSURE DURING PREGNANCY
     Route: 064

REACTIONS (1)
  - HORNER'S SYNDROME [None]
